FAERS Safety Report 23868459 (Version 1)
Quarter: 2024Q2

REPORT INFORMATION
  Report Type: Spontaneous
  Country: US (occurrence: US)
  Receive Date: 20240517
  Receipt Date: 20240517
  Transmission Date: 20240716
  Serious: No
  Sender: FDA-Public Use
  Company Number: US-Stemline Therapeutics, Inc.-2024ST001823

PATIENT
  Age: 67 Year
  Sex: Female

DRUGS (16)
  1. ORSERDU [Suspect]
     Active Substance: ELACESTRANT
     Indication: Product used for unknown indication
     Dosage: 345MG ONCE DAILY
     Route: 048
     Dates: start: 20240304
  2. ABRAXANE [Concomitant]
     Active Substance: PACLITAXEL
  3. APREPITANT [Concomitant]
     Active Substance: APREPITANT
  4. BENZONATATE [Concomitant]
     Active Substance: BENZONATATE
  5. DEXAMETHASONE [Concomitant]
     Active Substance: DEXAMETHASONE
  6. DIPHENHYDRAMINE [Concomitant]
     Active Substance: DIPHENHYDRAMINE
  7. FAMOTIDINE [Concomitant]
     Active Substance: FAMOTIDINE
  8. FEMARA [Concomitant]
     Active Substance: LETROZOLE
  9. IBRANCE [Concomitant]
     Active Substance: PALBOCICLIB
  10. NEUPOGEN [Concomitant]
     Active Substance: FILGRASTIM
  11. NIVESTYM [Concomitant]
     Active Substance: FILGRASTIM-AAFI
  12. ONDANSETRON [Concomitant]
     Active Substance: ONDANSETRON
  13. PRILOSEC [Concomitant]
     Active Substance: OMEPRAZOLE MAGNESIUM
  14. SYNTHROID [Concomitant]
     Active Substance: LEVOTHYROXINE SODIUM
  15. TRODELVY [Concomitant]
     Active Substance: SACITUZUMAB GOVITECAN-HZIY
  16. XGEVA [Concomitant]
     Active Substance: DENOSUMAB

REACTIONS (1)
  - Flatulence [Recovering/Resolving]
